FAERS Safety Report 5578905-8 (Version None)
Quarter: 2008Q1

REPORT INFORMATION
  Report Type: 
  Country: None (occurrence: None)
  Receive Date: 20080102
  Receipt Date: 20071130
  Transmission Date: 20080703
  Serious: No
  Sender: FDA-Public Use
  Company Number: US-BAYER-200715114NA

PATIENT
  Sex: Male

DRUGS (3)
  1. LEVITRA [Suspect]
     Indication: ERECTILE DYSFUNCTION
     Dosage: AS USED: 20 MG  UNIT DOSE: 20 MG
     Route: 048
  2. LIPITOR [Concomitant]
  3. LOTREL [Concomitant]

REACTIONS (1)
  - DIZZINESS [None]
